FAERS Safety Report 8008610-X (Version None)
Quarter: 2011Q4

REPORT INFORMATION
  Report Type: 
  Country: None (occurrence: None)
  Receive Date: 20111227
  Receipt Date: 20111212
  Transmission Date: 20120403
  Serious: Yes (Other)
  Sender: FDA-Public Use
  Company Number: KP-WATSON-2011-21814

PATIENT
  Age: 44 Year
  Sex: Male

DRUGS (2)
  1. TACROLIMUS [Suspect]
     Indication: IMMUNOSUPPRESSANT DRUG THERAPY
     Dosage: 10 MG, DAILY
     Route: 048
  2. TACROLIMUS [Suspect]
     Dosage: 4 MG, DAILY (MAINTENANCE DOSE)

REACTIONS (1)
  - DERMAL CYST [None]
